FAERS Safety Report 5655624-0 (Version None)
Quarter: 2008Q1

REPORT INFORMATION
  Report Type: 
  Country: None (occurrence: None)
  Receive Date: 20080307
  Receipt Date: 20080303
  Transmission Date: 20080703
  Serious: Yes (Other)
  Sender: FDA-Public Use
  Company Number: DK-JNJFOC-20080300577

PATIENT
  Sex: Female
  Weight: 60 kg

DRUGS (3)
  1. RISPERDAL [Suspect]
     Indication: DEPRESSION
     Route: 048
  2. CIPRALEX [Concomitant]
     Indication: DEPRESSION
     Route: 048
  3. ALOPAM [Concomitant]
     Indication: ANXIETY
     Route: 048

REACTIONS (2)
  - BLOOD PRESSURE DECREASED [None]
  - FALL [None]
